FAERS Safety Report 15982929 (Version 1)
Quarter: 2019Q1

REPORT INFORMATION
  Report Type: Spontaneous
  Country: PL (occurrence: PL)
  Receive Date: 20190219
  Receipt Date: 20190219
  Transmission Date: 20190418
  Serious: Yes (Hospitalization)
  Sender: FDA-Public Use
  Company Number: PHHY2019PL033339

PATIENT
  Age: 76 Year
  Sex: Female

DRUGS (3)
  1. FILGRASTIM [Concomitant]
     Active Substance: FILGRASTIM
     Indication: PROPHYLAXIS
     Dosage: UNK
     Route: 065
  2. DOCETAXEL. [Suspect]
     Active Substance: DOCETAXEL
     Indication: BREAST CANCER
     Dosage: 75 MG/M2, 6 CYCLES
     Route: 065
     Dates: start: 201503, end: 201508
  3. DOXORUBICIN HYDROCHLORIDE. [Suspect]
     Active Substance: DOXORUBICIN HYDROCHLORIDE
     Indication: BREAST CANCER
     Dosage: 50 MG/M2, 6 CYCLES
     Route: 065
     Dates: start: 201503, end: 201508

REACTIONS (6)
  - Thrombocytopenia [Unknown]
  - Haemorrhagic diathesis [Unknown]
  - Vomiting [Not Recovered/Not Resolved]
  - Anaemia [Unknown]
  - Nausea [Not Recovered/Not Resolved]
  - Febrile neutropenia [Unknown]
